FAERS Safety Report 12667309 (Version 1)
Quarter: 2016Q3

REPORT INFORMATION
  Report Type: Spontaneous
  Country: US (occurrence: None)
  Receive Date: 20160818
  Receipt Date: 20160818
  Transmission Date: 20161109
  Serious: Yes (Other)
  Sender: FDA-Public Use
  Company Number: None

PATIENT
  Age: 76 Year
  Sex: Female

DRUGS (1)
  1. ADVIL [Suspect]
     Active Substance: IBUPROFEN
     Indication: POSTOPERATIVE CARE
     Dosage: 2 TABLETS USED ONLY ONCE P.O.
     Route: 048
     Dates: start: 20160805

REACTIONS (3)
  - Oesophageal pain [None]
  - Eustachian tube disorder [None]
  - Throat irritation [None]

NARRATIVE: CASE EVENT DATE: 20160805
